FAERS Safety Report 5223241-2 (Version None)
Quarter: 2007Q1

REPORT INFORMATION
  Report Type: 
  Country: None (occurrence: None)
  Receive Date: 20070124
  Receipt Date: 20070116
  Transmission Date: 20070707
  Serious: Yes (Hospitalization)
  Sender: FDA-Public Use
  Company Number: GXKR2007PL00876

PATIENT
  Sex: Female
  Weight: 67 kg

DRUGS (9)
  1. BISOHEXAL (NGX) (BISOPROLOL) FILM-COATED TABLET [Suspect]
     Indication: HYPERTENSION
     Dosage: 5 MG, QD, ORAL
     Route: 048
     Dates: end: 20061208
  2. METOPROLOL (NGX) (METOPROLOL) TABLET [Suspect]
     Indication: HYPERTENSION
     Dosage: 50 MG, QD, ORAL
     Route: 048
     Dates: end: 20061208
  3. CORYOL(CARVEDILOL) TABLET [Suspect]
     Indication: HYPERTENSION
     Dosage: 12.5 MG, QD, ORAL
     Route: 048
     Dates: end: 20061208
  4. ENALAPRIL MALEATE [Concomitant]
  5. POTASSIUM CHLORIDE [Concomitant]
  6. MOLSIDOMINA  (MOLSIDOMINE) [Concomitant]
  7. EFFOX LONG (ISOSORBIDE  MONONITRATE) [Concomitant]
  8. TIALORID (AMILORIDE, HYDROCHLOROTHIAZIDE) [Concomitant]
  9. ALENDRONIC ACID (ALENDRONIC ACID) [Concomitant]

REACTIONS (2)
  - BRADYCARDIA [None]
  - DRUG INTERACTION [None]
